FAERS Safety Report 21780886 (Version 1)
Quarter: 2022Q4

REPORT INFORMATION
  Report Type: Spontaneous
  Country: FR (occurrence: FR)
  Receive Date: 20221227
  Receipt Date: 20221227
  Transmission Date: 20230112
  Serious: Yes (Hospitalization, Other)
  Sender: FDA-Public Use
  Company Number: None

PATIENT
  Age: 87 Year
  Sex: Female

DRUGS (8)
  1. PANTOPRAZOLE [Suspect]
     Active Substance: PANTOPRAZOLE
     Indication: Prophylaxis against gastrointestinal ulcer
     Route: 065
     Dates: start: 20221026, end: 20221201
  2. PHLOROGLUCINOL [Suspect]
     Active Substance: PHLOROGLUCINOL
     Indication: Abdominal pain
     Route: 065
     Dates: start: 20221026, end: 20221201
  3. VOGALENE [Suspect]
     Active Substance: METOPIMAZINE
     Indication: Nausea
     Route: 065
     Dates: start: 20221026, end: 20221201
  4. CHOLECALCIFEROL [Suspect]
     Active Substance: CHOLECALCIFEROL
     Indication: Hypovitaminosis
     Dosage: UNKNOWN
     Route: 065
     Dates: start: 20221117
  5. RACECADOTRIL [Suspect]
     Active Substance: RACECADOTRIL
     Indication: Diarrhoea
     Route: 065
     Dates: start: 20221026, end: 20221201
  6. FOSFOMYCIN [Suspect]
     Active Substance: FOSFOMYCIN
     Indication: Urinary tract infection
     Route: 065
     Dates: start: 20221019, end: 20221201
  7. DICLOFENAC SODIUM [Suspect]
     Active Substance: DICLOFENAC SODIUM
     Indication: Pain
     Dosage: UNKNOWN
     Route: 065
     Dates: start: 20221026
  8. ANETHOLTRITHION [Suspect]
     Active Substance: ANETHOLTRITHION
     Indication: Dyspepsia
     Route: 065
     Dates: start: 20221026, end: 20221201

REACTIONS (1)
  - Drug reaction with eosinophilia and systemic symptoms [Not Recovered/Not Resolved]

NARRATIVE: CASE EVENT DATE: 20221122
